FAERS Safety Report 4539703-7 (Version None)
Quarter: 2004Q4

REPORT INFORMATION
  Report Type: 
  Country: None (occurrence: None)
  Receive Date: 20041228
  Receipt Date: 20041217
  Transmission Date: 20050328
  Serious: Yes (Disabling, Other)
  Sender: FDA-Public Use
  Company Number: FR-JNJFOC-20041105799

PATIENT
  Sex: Female

DRUGS (4)
  1. RISPERDAL [Suspect]
     Indication: PSYCHOTIC DISORDER
     Route: 049
  2. RISPERDAL [Suspect]
     Route: 049
  3. ANAFRANIL [Concomitant]
  4. LEXOMIL [Concomitant]

REACTIONS (5)
  - DYSKINESIA [None]
  - DYSPHAGIA [None]
  - DYSPHONIA [None]
  - ERUCTATION [None]
  - OESOPHAGEAL PAIN [None]
